FAERS Safety Report 9531407 (Version 1)
Quarter: 2013Q2

REPORT INFORMATION
  Report Type: Spontaneous
  Country: US (occurrence: None)
  Receive Date: 20130503
  Receipt Date: 20130503
  Transmission Date: 20140414
  Serious: No
  Sender: FDA-Public Use
  Company Number: 1000043211

PATIENT
  Age: 77 Year
  Sex: Female
  Weight: 68 kg

DRUGS (8)
  1. DALIRESP (ROFLUMILAST) (500 MICROGRAM, TABLETS) [Suspect]
     Indication: CHRONIC OBSTRUCTIVE PULMONARY DISEASE
     Dosage: 500 MCG (500 MCG, 1 IN 1 D), ORAL
     Route: 048
     Dates: start: 20130305
  2. DALIRESP (ROFLUMILAST) (500 MICROGRAM, TABLETS) [Suspect]
     Indication: BRONCHITIS
     Dosage: 500 MCG (500 MCG, 1 IN 1 D), ORAL
     Route: 048
     Dates: start: 20130305
  3. PREDNISONE (PREDNISONE) [Suspect]
     Indication: BRONCHITIS
  4. COUMADIN (WARFARIN( (WARFARIN) [Concomitant]
  5. DIGOXIN (DIGOXIN) (DIGOXIN) [Concomitant]
  6. METOPROLOL (METOPROLOL) (METOPROLOL) [Concomitant]
  7. SYMICORT (BUDESONIDE W/FORMOTEROL FUMARATE) (BUDESONIDE W/FORMOTEROL FUMARATE) [Concomitant]
  8. OXYGEN (OXYGEN) (OXYGEN) [Concomitant]

REACTIONS (4)
  - Dyspnoea [None]
  - Tremor [None]
  - Diarrhoea [None]
  - Weight decreased [None]
